FAERS Safety Report 12062852 (Version 2)
Quarter: 2021Q2

REPORT INFORMATION
  Report Type: Spontaneous
  Country: NZ (occurrence: NZ)
  Receive Date: 20160210
  Receipt Date: 20210416
  Transmission Date: 20210716
  Serious: Yes (Hospitalization, Other)
  Sender: FDA-Public Use
  Company Number: NZ-PFIZER INC-2016040633

PATIENT
  Age: 71 Year
  Sex: Male

DRUGS (6)
  1. LYRICA [Suspect]
     Active Substance: PREGABALIN
     Dosage: 0.5 TABLET, UNK
  2. METHADONE [Suspect]
     Active Substance: METHADONE HYDROCHLORIDE
     Indication: AUTONOMIC NEUROPATHY
  3. LYRICA [Suspect]
     Active Substance: PREGABALIN
     Dosage: 150 MG, DAILY
     Route: 048
  4. LYRICA [Suspect]
     Active Substance: PREGABALIN
     Indication: COMPLEX REGIONAL PAIN SYNDROME
     Dosage: 150 MG, 2X/DAY
  5. LYRICA [Suspect]
     Active Substance: PREGABALIN
     Indication: AUTONOMIC NEUROPATHY
     Dosage: 75 MG, 2X/DAY
  6. METHADONE [Suspect]
     Active Substance: METHADONE HYDROCHLORIDE
     Indication: COMPLEX REGIONAL PAIN SYNDROME
     Dosage: UNK, DAILY
     Route: 048

REACTIONS (11)
  - Accident [Not Recovered/Not Resolved]
  - Intentional underdose [Unknown]
  - Withdrawal syndrome [Not Recovered/Not Resolved]
  - Ureteric cancer [Unknown]
  - Disturbance in attention [Not Recovered/Not Resolved]
  - Bladder cancer [Not Recovered/Not Resolved]
  - Eye injury [Unknown]
  - Chest pain [Unknown]
  - Visual impairment [Not Recovered/Not Resolved]
  - Intentional product misuse [Unknown]
  - Tremor [Recovered/Resolved]
